FAERS Safety Report 6839550-7 (Version None)
Quarter: 2010Q3

REPORT INFORMATION
  Report Type: 
  Country: None (occurrence: None)
  Receive Date: 20100714
  Receipt Date: 20100126
  Transmission Date: 20110219
  Serious: No
  Sender: FDA-Public Use
  Company Number: A0841493A

PATIENT
  Sex: Female

DRUGS (2)
  1. FLOVENT [Suspect]
     Route: 055
  2. PULMICORT [Suspect]

REACTIONS (2)
  - PRURITUS [None]
  - SWOLLEN TONGUE [None]
